FAERS Safety Report 4561460-9 (Version None)
Quarter: 2005Q1

REPORT INFORMATION
  Report Type: 
  Country: None (occurrence: None)
  Receive Date: 20050118
  Receipt Date: 20040713
  Transmission Date: 20050727
  Serious: Yes (Other)
  Sender: FDA-Public Use
  Company Number: HQWYE190616JUL04

PATIENT
  Sex: Female

DRUGS (5)
  1. PREMPRO [Suspect]
     Indication: MENOPAUSAL SYMPTOMS
  2. MEDROXYPROGRESTERONE ACETATE [Suspect]
     Indication: HORMONE REPLACEMENT THERAPY
  3. MEDROXYPROGRESTERONE ACETATE [Suspect]
     Indication: MENOPAUSE
  4. PREMARIN [Suspect]
  5. PROVERA [Suspect]

REACTIONS (1)
  - BREAST CANCER [None]
